FAERS Safety Report 17235263 (Version 1)
Quarter: 2020Q1

REPORT INFORMATION
  Report Type: Spontaneous
  Country: SE (occurrence: SE)
  Receive Date: 20200106
  Receipt Date: 20200106
  Transmission Date: 20200409
  Serious: Yes (Hospitalization)
  Sender: FDA-Public Use
  Company Number: SE-TEVA-2019-SE-1162224

PATIENT
  Sex: Male

DRUGS (3)
  1. STESOLID [Suspect]
     Active Substance: DIAZEPAM
     Dosage: 5 MG
     Route: 048
     Dates: start: 20190506, end: 20190506
  2. PROPAVAN [Suspect]
     Active Substance: PROPIOMAZINE
     Dosage: 250 MILLIGRAM
     Route: 048
     Dates: start: 20190506, end: 20190506
  3. ESCITALOPRAM [Concomitant]
     Active Substance: ESCITALOPRAM OXALATE

REACTIONS (2)
  - Intentional overdose [Unknown]
  - Intentional self-injury [Unknown]

NARRATIVE: CASE EVENT DATE: 20190506
